FAERS Safety Report 5763432-5 (Version None)
Quarter: 2008Q2

REPORT INFORMATION
  Report Type: 
  Country: None (occurrence: None)
  Receive Date: 20080604
  Receipt Date: 20080604
  Transmission Date: 20081010
  Serious: Yes (Life-Threatening)
  Sender: FDA-Public Use
  Company Number: None

PATIENT
  Age: 66 Year
  Sex: Female

DRUGS (1)
  1. TORSEMIDE [Suspect]
     Indication: HYPERTENSION
     Dosage: 10MG PO DAILY
     Route: 048
     Dates: start: 20060101

REACTIONS (5)
  - DYSPNOEA [None]
  - FLUID RETENTION [None]
  - HEADACHE [None]
  - NOCTURIA [None]
  - OLIGURIA [None]
